FAERS Safety Report 11622799 (Version 1)
Quarter: 2015Q4

REPORT INFORMATION
  Report Type: Spontaneous
  Country: US (occurrence: US)
  Receive Date: 20151013
  Receipt Date: 20151013
  Transmission Date: 20160304
  Serious: No
  Sender: FDA-Public Use
  Company Number: US-JNJFOC-20150500806

PATIENT
  Age: 5 Year
  Sex: Female

DRUGS (1)
  1. CHILDRENS TYLENOL [Suspect]
     Active Substance: ACETAMINOPHEN
     Indication: ABDOMINAL PAIN UPPER
     Route: 048
     Dates: start: 20150430

REACTIONS (3)
  - Wrong technique in product usage process [Unknown]
  - Product packaging issue [Unknown]
  - Off label use [Unknown]

NARRATIVE: CASE EVENT DATE: 20150430
